FAERS Safety Report 11281989 (Version 2)
Quarter: 2015Q3

REPORT INFORMATION
  Report Type: Spontaneous
  Country: US (occurrence: US)
  Receive Date: 20150718
  Receipt Date: 20150731
  Transmission Date: 20151125
  Serious: No
  Sender: FDA-Public Use
  Company Number: US-AMGEN-USASP2015070428

PATIENT
  Age: 50 Year
  Sex: Female
  Weight: 75.74 kg

DRUGS (1)
  1. ENBREL [Suspect]
     Active Substance: ETANERCEPT
     Indication: RHEUMATOID ARTHRITIS
     Dosage: 50 MG, QWK
     Route: 058
     Dates: start: 20150610

REACTIONS (3)
  - Peripheral swelling [Recovered/Resolved]
  - Arthropathy [Unknown]
  - Arthropod bite [Unknown]

NARRATIVE: CASE EVENT DATE: 2015
